FAERS Safety Report 7820766-8 (Version None)
Quarter: 2011Q4

REPORT INFORMATION
  Report Type: 
  Country: None (occurrence: None)
  Receive Date: 20111018
  Receipt Date: 20111004
  Transmission Date: 20120403
  Serious: Yes (Hospitalization, Other)
  Sender: FDA-Public Use
  Company Number: US-BAYER-201038271NA

PATIENT
  Age: 43 Year
  Sex: Female

DRUGS (8)
  1. YASMIN [Suspect]
     Indication: MENORRHAGIA
  2. DICLOFENAC [Concomitant]
     Dosage: UNK
     Dates: start: 20060101
  3. YASMIN [Suspect]
     Indication: MENSTRUATION IRREGULAR
     Dosage: UNK
     Route: 048
     Dates: start: 20050101, end: 20080101
  4. ZOLOFT [Concomitant]
     Dosage: UNK
     Dates: start: 20040101, end: 20100101
  5. ABILIFY [Concomitant]
     Dosage: 15 MG, QD
     Route: 048
     Dates: start: 20040101, end: 20100101
  6. SYNTHROID [Concomitant]
     Indication: HYPOTHYROIDISM
     Dosage: 25 ?G, QD
     Route: 048
  7. PREVACID [Concomitant]
     Dosage: 30 MG, QD
     Route: 048
  8. WELLBUTRIN [Concomitant]
     Dosage: 450 MG, QD
     Route: 048
     Dates: start: 20030101

REACTIONS (6)
  - HYPOAESTHESIA [None]
  - TRANSIENT ISCHAEMIC ATTACK [None]
  - AMNESIA [None]
  - GAIT DISTURBANCE [None]
  - CEREBROVASCULAR ACCIDENT [None]
  - VISUAL FIELD DEFECT [None]
